FAERS Safety Report 22761424 (Version 15)
Quarter: 2024Q4

REPORT INFORMATION
  Report Type: Spontaneous
  Country: US (occurrence: US)
  Receive Date: 20230728
  Receipt Date: 20241016
  Transmission Date: 20250115
  Serious: Yes (Other)
  Sender: PFIZER
  Company Number: US-PFIZER INC-PV202300048183

PATIENT
  Age: 65 Year
  Sex: Female

DRUGS (1)
  1. BOSULIF [Suspect]
     Active Substance: BOSUTINIB MONOHYDRATE
     Indication: Chronic myeloid leukaemia
     Dosage: 100 MG, DAILY (TAKE WHOLE WITH WATER AND FOOD)/ TAKE 1 TABLET (100 MG) DAILY
     Route: 048
     Dates: start: 20240123

REACTIONS (8)
  - Cerebrovascular accident [Unknown]
  - Visual impairment [Unknown]
  - Cataract [Unknown]
  - Eye haemorrhage [Unknown]
  - Mouth swelling [Unknown]
  - Speech disorder [Unknown]
  - Oral pain [Unknown]
  - Brain fog [Unknown]
